FAERS Safety Report 13994148 (Version 1)
Quarter: 2017Q3

REPORT INFORMATION
  Report Type: Not Available
  Country: US (occurrence: US)
  Receive Date: 20170920
  Receipt Date: 20170920
  Transmission Date: 20171128
  Serious: No
  Sender: FDA-Public Use
  Company Number: US-NEUROCRINE BIOSCIENCES INC.-2017NBI00518

PATIENT
  Age: 81 Year
  Sex: Female

DRUGS (16)
  1. INGREZZA [Suspect]
     Active Substance: VALBENAZINE
     Indication: PRODUCT USED FOR UNKNOWN INDICATION
     Route: 048
     Dates: start: 20170630, end: 201707
  2. MULTIVITAMIN [Concomitant]
     Active Substance: VITAMINS
  3. KLOR-CON [Concomitant]
     Active Substance: POTASSIUM CHLORIDE
  4. METOPROLOL. [Concomitant]
     Active Substance: METOPROLOL
  5. BISACODYL. [Concomitant]
     Active Substance: BISACODYL
  6. MONTELUKAST [Concomitant]
     Active Substance: MONTELUKAST SODIUM
  7. ACETAMINOPHEN. [Concomitant]
     Active Substance: ACETAMINOPHEN
  8. AMLODIPINE [Concomitant]
     Active Substance: AMLODIPINE BESYLATE
  9. VITAMIN B12 [Concomitant]
     Active Substance: CYANOCOBALAMIN
  10. INGREZZA [Suspect]
     Active Substance: VALBENAZINE
     Route: 048
     Dates: start: 201707
  11. ALOE [Concomitant]
     Active Substance: ALOE
  12. NORCO [Concomitant]
     Active Substance: ACETAMINOPHEN\HYDROCODONE BITARTRATE
  13. OLMESARTAN [Concomitant]
     Active Substance: OLMESARTAN
  14. LOPERAMIDE [Concomitant]
     Active Substance: LOPERAMIDE
  15. PALIPERIDONE. [Concomitant]
     Active Substance: PALIPERIDONE
  16. TRAZODONE [Concomitant]
     Active Substance: TRAZODONE HYDROCHLORIDE

REACTIONS (1)
  - Musculoskeletal stiffness [Unknown]

NARRATIVE: CASE EVENT DATE: 20170710
